FAERS Safety Report 11324970 (Version 1)
Quarter: 2015Q3

REPORT INFORMATION
  Report Type: Spontaneous
  Country: AU (occurrence: AU)
  Receive Date: 20150730
  Receipt Date: 20150730
  Transmission Date: 20151125
  Serious: Yes (Hospitalization)
  Sender: FDA-Public Use
  Company Number: AU-ASTRAZENECA-2015SE72566

PATIENT
  Sex: Male

DRUGS (1)
  1. ACIMAX [Suspect]
     Active Substance: OMEPRAZOLE
     Route: 048
     Dates: start: 2002

REACTIONS (1)
  - Kidney infection [Recovered/Resolved]
